FAERS Safety Report 5881680-0 (Version None)
Quarter: 2008Q3

REPORT INFORMATION
  Report Type: 
  Country: None (occurrence: None)
  Receive Date: 20080912
  Receipt Date: 20080702
  Transmission Date: 20090109
  Serious: No
  Sender: FDA-Public Use
  Company Number: US-ABBOTT-08P-163-0460839-00

PATIENT
  Sex: Female
  Weight: 83.99 kg

DRUGS (2)
  1. HUMIRA [Suspect]
     Indication: PSORIASIS
     Dosage: 1 PEN TWICE A MONTH
     Route: 050
     Dates: start: 20080627
  2. DECLINED OTHERS [Concomitant]

REACTIONS (1)
  - INJECTION SITE PAIN [None]
